FAERS Safety Report 14567201 (Version 3)
Quarter: 2018Q2

REPORT INFORMATION
  Report Type: Report from Study
  Country: PL (occurrence: PL)
  Receive Date: 20180223
  Receipt Date: 20180420
  Transmission Date: 20180711
  Serious: Yes (Hospitalization)
  Sender: FDA-Public Use
  Company Number: PL-PFIZER INC-2018076470

PATIENT
  Age: 46 Year
  Sex: Female
  Weight: 55 kg

DRUGS (9)
  1. METHOTREXATE. [Suspect]
     Active Substance: METHOTREXATE
     Indication: RHEUMATOID ARTHRITIS
     Dosage: 10 MG, UNK
     Route: 048
     Dates: start: 20160405, end: 20180128
  2. ANAPRAN [Concomitant]
     Dosage: UNK
     Route: 065
     Dates: start: 201604
  3. POLPRAZOL [Concomitant]
     Active Substance: OMEPRAZOLE
     Dosage: UNK
     Route: 065
     Dates: start: 201604
  4. ELIN [Concomitant]
     Dosage: UNK
     Route: 065
     Dates: start: 201605
  5. FILGOTINIB [Suspect]
     Active Substance: FILGOTINIB
     Indication: RHEUMATOID ARTHRITIS
     Dosage: 100 MG, DAILY
     Route: 048
     Dates: start: 20170613, end: 20180128
  6. FILGOTINIB [Suspect]
     Active Substance: FILGOTINIB
     Dosage: 100 MG, DAILY
     Route: 048
     Dates: start: 20180207
  7. EUTHYROX [Concomitant]
     Active Substance: LEVOTHYROXINE SODIUM
     Dosage: UNK
     Route: 065
     Dates: start: 2015
  8. D VITUM [Concomitant]
     Indication: RHEUMATOID ARTHRITIS
     Dosage: UNK
     Route: 065
     Dates: start: 201703
  9. ACIDUM FOLICUM [Concomitant]
     Active Substance: FOLIC ACID
     Dosage: UNK
     Route: 065
     Dates: start: 2003

REACTIONS (1)
  - Transient ischaemic attack [Recovered/Resolved]

NARRATIVE: CASE EVENT DATE: 20180126
